FAERS Safety Report 9050003 (Version 1)
Quarter: 2013Q1

REPORT INFORMATION
  Report Type: Spontaneous
  Country: US (occurrence: US)
  Receive Date: 20130205
  Receipt Date: 20130205
  Transmission Date: 20140127
  Serious: No
  Sender: FDA-Public Use
  Company Number: US-GLAXOSMITHKLINE-A0963144A

PATIENT
  Age: 66 Year
  Sex: Female

DRUGS (1)
  1. ARIXTRA [Suspect]
     Route: 042
     Dates: start: 2011

REACTIONS (2)
  - Injection site haematoma [Not Recovered/Not Resolved]
  - Injection site mass [Not Recovered/Not Resolved]
